FAERS Safety Report 7959783-6 (Version None)
Quarter: 2011Q4

REPORT INFORMATION
  Report Type: 
  Country: None (occurrence: None)
  Receive Date: 20111206
  Receipt Date: 20111125
  Transmission Date: 20120403
  Serious: Yes (Hospitalization)
  Sender: FDA-Public Use
  Company Number: KR-JNJFOC-20110904199

PATIENT
  Sex: Female
  Weight: 53.5 kg

DRUGS (2)
  1. PALIPERIDONE [Suspect]
     Indication: SCHIZOPHRENIA
     Route: 030
     Dates: start: 20110317, end: 20110728
  2. LORAZEPAM [Concomitant]
     Dates: start: 20110317

REACTIONS (1)
  - BREAST ABSCESS [None]
